FAERS Safety Report 8483450 (Version 2)
Quarter: 2012Q4

REPORT INFORMATION
  Report Type: Report from Study
  Country: DE (occurrence: DE)
  Receive Date: 20120329
  Receipt Date: 20121123
  Transmission Date: 20130627
  Serious: Yes (Hospitalization, Other)
  Sender: FDA-Public Use
  Company Number: DE-ABBOTT-12P-062-0918678-00

PATIENT
  Sex: Female
  Weight: 65 kg

DRUGS (7)
  1. HUMIRA [Suspect]
     Indication: PRODUCT USED FOR UNKNOWN INDICATION
     Route: 058
     Dates: start: 200904, end: 201110
  2. HUMIRA [Suspect]
     Route: 058
     Dates: start: 201111, end: 201202
  3. HUMIRA [Suspect]
     Route: 058
     Dates: start: 201202, end: 201203
  4. HUMIRA [Suspect]
     Route: 058
     Dates: start: 201203
  5. METEX [Concomitant]
     Indication: PRODUCT USED FOR UNKNOWN INDICATION
     Dates: start: 2007
  6. FOLIC ACID [Concomitant]
     Indication: PRODUCT USED FOR UNKNOWN INDICATION
  7. GLIBENCLAMID [Concomitant]
     Indication: DIABETES MELLITUS

REACTIONS (1)
  - Osteoarthritis [Unknown]
